FAERS Safety Report 20945571 (Version 2)
Quarter: 2022Q3

REPORT INFORMATION
  Report Type: Spontaneous
  Country: JP (occurrence: JP)
  Receive Date: 20220610
  Receipt Date: 20220719
  Transmission Date: 20221027
  Serious: No
  Sender: FDA-Public Use
  Company Number: JP-PFIZER INC-202200744229

PATIENT

DRUGS (1)
  1. GENOTROPIN [Suspect]
     Active Substance: SOMATROPIN
     Dosage: 1.0 MG
     Route: 058

REACTIONS (3)
  - Wrong technique in device usage process [Unknown]
  - Product dose omission issue [Unknown]
  - Device mechanical issue [Unknown]
